FAERS Safety Report 6015062-8 (Version None)
Quarter: 2008Q4

REPORT INFORMATION
  Report Type: 
  Country: None (occurrence: None)
  Receive Date: 20081222
  Receipt Date: 20081215
  Transmission Date: 20090506
  Serious: Yes (Hospitalization)
  Sender: FDA-Public Use
  Company Number: US-JNJFOC-20081204178

PATIENT
  Sex: Male
  Weight: 104.33 kg

DRUGS (8)
  1. FENTANYL TRANSDERMAL SYSTEM [Suspect]
     Indication: PAIN
     Dosage: 100 MCG X 1AND 50 MCG X 1
     Route: 062
  2. DURAGESIC-100 [Suspect]
     Indication: PAIN
     Route: 062
  3. FENTANYL-100 [Suspect]
     Indication: PAIN
     Route: 062
  4. LISINOPRIL [Concomitant]
     Indication: HYPERTENSION
     Route: 048
  5. GLYCOPHAGE [Concomitant]
     Indication: DIABETES MELLITUS
     Route: 048
  6. VERAPAMIL [Concomitant]
     Indication: HYPERTENSION
     Route: 048
  7. ZOCOR [Concomitant]
     Indication: BLOOD CHOLESTEROL
     Dosage: 1/2 TABLET
     Route: 048
  8. METOPROLOL TARTRATE [Concomitant]
     Indication: HYPERTENSION
     Route: 048

REACTIONS (8)
  - BLOOD GLUCOSE INCREASED [None]
  - DEPRESSION [None]
  - EATING DISORDER [None]
  - LOWER LIMB FRACTURE [None]
  - THERAPEUTIC RESPONSE DECREASED [None]
  - TREATMENT NONCOMPLIANCE [None]
  - VOMITING [None]
  - WEIGHT DECREASED [None]
